FAERS Safety Report 4978013-0 (Version None)
Quarter: 2006Q2

REPORT INFORMATION
  Report Type: 
  Country: None (occurrence: None)
  Receive Date: 20060417
  Receipt Date: 20060405
  Transmission Date: 20061013
  Serious: Yes (Hospitalization, Other)
  Sender: FDA-Public Use
  Company Number: 2006031667

PATIENT
  Sex: Female

DRUGS (6)
  1. NEURONTIN [Suspect]
     Indication: ILL-DEFINED DISORDER
  2. PROPRANOLOL [Suspect]
     Indication: ILL-DEFINED DISORDER
  3. PROZAC [Concomitant]
  4. WELLBUTRIN [Concomitant]
  5. ATIVAN [Concomitant]
  6. ZANAFLEX [Concomitant]

REACTIONS (6)
  - BLOOD PRESSURE INCREASED [None]
  - HEADACHE [None]
  - INTENTIONAL OVERDOSE [None]
  - LEUKOCYTOSIS [None]
  - NON-CARDIAC CHEST PAIN [None]
  - SUICIDAL IDEATION [None]
